FAERS Safety Report 9227621 (Version 1)
Quarter: 2013Q2

REPORT INFORMATION
  Report Type: Spontaneous
  Country: FR (occurrence: FR)
  Receive Date: 20130412
  Receipt Date: 20130412
  Transmission Date: 20140414
  Serious: Yes (Death, Other)
  Sender: FDA-Public Use
  Company Number: FR-009507513-1304FRA002551

PATIENT
  Age: 89 Year
  Sex: Male

DRUGS (15)
  1. INVANZ [Suspect]
     Dosage: 1 DF, ONCE
     Route: 042
     Dates: start: 20121024
  2. PERFALGAN [Suspect]
     Dosage: 1 DF, ONCE
     Route: 042
     Dates: start: 20121023, end: 20121023
  3. PERFALGAN [Suspect]
     Dosage: 1 DF, ONCE
     Route: 042
     Dates: start: 20121024, end: 20121024
  4. DAFALGAN [Concomitant]
     Dosage: 2 DF, TID
     Route: 048
  5. XATRAL [Concomitant]
     Dosage: 1 UNK, UNK
     Route: 048
  6. URBANYL [Concomitant]
     Dosage: 1 DF, BID
     Route: 048
  7. STABLON [Concomitant]
     Dosage: 1 DF, BID
     Route: 048
  8. LAMOTRIGINE [Concomitant]
     Dosage: 25 MG, UNK
     Route: 048
  9. SERESTA [Concomitant]
     Dosage: 1 DF, BID
     Route: 048
  10. IMOVANE [Concomitant]
     Dosage: 1 DF, QD
     Route: 048
  11. LOXEN [Concomitant]
     Dosage: 3 DF, QD
     Route: 048
  12. ATENOLOL [Concomitant]
     Dosage: 25 MG, TID
     Route: 048
  13. TAHOR [Concomitant]
     Dosage: 1 DF, QD
     Route: 048
  14. ALLOPURINOL [Concomitant]
     Dosage: 200 MG, QD
  15. KARDEGIC [Concomitant]
     Dosage: 1 DF, QD
     Route: 048

REACTIONS (1)
  - Cardio-respiratory arrest [Fatal]
